FAERS Safety Report 6229216-9 (Version None)
Quarter: 2009Q2

REPORT INFORMATION
  Report Type: 
  Country: None (occurrence: None)
  Receive Date: 20090615
  Receipt Date: 20090320
  Transmission Date: 20091009
  Serious: No
  Sender: FDA-Public Use
  Company Number: US-BAYER-200916361NA

PATIENT
  Sex: Female

DRUGS (1)
  1. MIRENA [Suspect]
     Indication: DRUG USE FOR UNKNOWN INDICATION
     Route: 015
     Dates: start: 20090102, end: 20090123

REACTIONS (5)
  - ABDOMINAL PAIN [None]
  - CHILLS [None]
  - PAIN [None]
  - PYREXIA [None]
  - VAGINAL HAEMORRHAGE [None]
